FAERS Safety Report 15770715 (Version 4)
Quarter: 2019Q1

REPORT INFORMATION
  Report Type: Spontaneous
  Country: FR (occurrence: FR)
  Receive Date: 20181228
  Receipt Date: 20190211
  Transmission Date: 20190417
  Serious: Yes (Life-Threatening, Hospitalization, Other)
  Sender: FDA-Public Use
  Company Number: FR-ARRAY-2018-04882

PATIENT

DRUGS (19)
  1. MEKTOVI [Suspect]
     Active Substance: BINIMETINIB
     Dosage: 45 MG, BID
     Route: 048
     Dates: start: 20181217, end: 20181217
  2. UVEDOSE [Concomitant]
     Active Substance: CHOLECALCIFEROL
     Indication: PRODUCT USED FOR UNKNOWN INDICATION
     Dosage: 100000 U, ORAL SOLUTION PER OS 1 DF EVERY 2 MONTHS
     Route: 048
  3. HYDROCORTISONE                     /00028602/ [Concomitant]
     Active Substance: HYDROCORTISONE
     Indication: PRODUCT USED FOR UNKNOWN INDICATION
     Dosage: 30 MG, QD (20-10-0)
     Dates: end: 20181210
  4. FENTANYL. [Concomitant]
     Active Substance: FENTANYL
     Indication: PRODUCT USED FOR UNKNOWN INDICATION
     Dosage: 2.1 MG, CUTANEOUS PATCH AT 12 UG/72H
  5. PERINDOPRIL [Concomitant]
     Active Substance: PERINDOPRIL
     Indication: HYPERTENSION
     Dosage: 4 MG, PER OS AT 1 DF BID
  6. ESIDREX [Concomitant]
     Active Substance: HYDROCHLOROTHIAZIDE
     Indication: HYPERTENSION
     Dosage: 25 MG, PER OS 0.5 DF/DAY IN EVENING
     Dates: end: 20181210
  7. MEKTOVI [Suspect]
     Active Substance: BINIMETINIB
     Indication: METASTATIC MALIGNANT MELANOMA
     Dosage: 45 MG, BID (3-0-3)
     Route: 048
     Dates: start: 20181119, end: 20181210
  8. BRAFTOVI [Suspect]
     Active Substance: ENCORAFENIB
     Indication: METASTATIC MALIGNANT MELANOMA
     Dosage: 450 MG, QD (0-0-6)
     Route: 048
     Dates: start: 20181119, end: 20181210
  9. LYRICA [Concomitant]
     Active Substance: PREGABALIN
     Indication: PRODUCT USED FOR UNKNOWN INDICATION
     Dosage: 50 MG, BID
     Dates: end: 20181210
  10. DOLIPRANE [Concomitant]
     Active Substance: ACETAMINOPHEN
     Indication: PAIN
     Dosage: PER OS AT 1G/6H AS NEEDED
  11. LERCAPRESS                         /01366402/ [Concomitant]
     Active Substance: LERCANIDIPINE HYDROCHLORIDE
     Indication: HYPERTENSION
     Dosage: 20/20 MG PER OS AT 1 DF QD
     Dates: end: 20181210
  12. FORLAX [Concomitant]
     Active Substance: POLYETHYLENE GLYCOL 4000
     Indication: CONSTIPATION
     Dosage: PER OS AT 2 DF/DAY, ORAL POWDER
     Route: 048
  13. INEXIUM                            /01479302/ [Concomitant]
     Active Substance: ESOMEPRAZOLE MAGNESIUM
     Indication: GASTROOESOPHAGEAL REFLUX DISEASE
     Dosage: 20 MG, UNK
  14. SPASFON                            /00765801/ [Concomitant]
     Active Substance: PHLOROGLUCINOL\1,3,5-TRIMETHOXYBENZENE
     Indication: ABDOMINAL PAIN
     Dosage: 80 MG, PER OS AT 2 DF
  15. XANAX [Concomitant]
     Active Substance: ALPRAZOLAM
     Indication: PRODUCT USED FOR UNKNOWN INDICATION
     Dosage: 0.25 MG, TID PER OS AT 0.5 DF
  16. MEKTOVI [Suspect]
     Active Substance: BINIMETINIB
     Dosage: 30 MG, QD
     Route: 048
     Dates: start: 20181226, end: 20181226
  17. BRAFTOVI [Suspect]
     Active Substance: ENCORAFENIB
     Dosage: 450 MG SINGLE AT 8:00 PM
     Route: 048
     Dates: start: 20181217, end: 20181217
  18. BRAFTOVI [Suspect]
     Active Substance: ENCORAFENIB
     Dosage: 150 MG, QD
     Route: 048
     Dates: start: 20181226, end: 20181226
  19. ACUPAN [Concomitant]
     Active Substance: NEFOPAM HYDROCHLORIDE
     Indication: PAIN
     Dosage: 1 TO 4 AMP/DAY AS NEEDED

REACTIONS (30)
  - Deep vein thrombosis [Recovered/Resolved]
  - Pyrexia [Recovered/Resolved]
  - Normocytic anaemia [Unknown]
  - Somnolence [Recovered/Resolved]
  - Shock [Recovered/Resolved]
  - Acute kidney injury [Recovered/Resolved]
  - Oropharyngeal pain [Unknown]
  - Tongue disorder [Unknown]
  - Cholestasis [Unknown]
  - Eosinophilia [Recovered/Resolved]
  - Hypoalbuminaemia [Unknown]
  - Cough [Unknown]
  - Oedema peripheral [Recovered/Resolved]
  - Chills [Recovered/Resolved]
  - Hyperleukocytosis [Unknown]
  - Hepatocellular injury [Recovered/Resolved]
  - Thrombocytopenic purpura [Recovered/Resolved]
  - Epistaxis [Recovered/Resolved]
  - Dehydration [Recovered/Resolved]
  - Face oedema [Recovered/Resolved]
  - Nausea [Recovered/Resolved]
  - C-reactive protein increased [Recovered/Resolved]
  - Blood creatine phosphokinase increased [Recovered/Resolved]
  - Diarrhoea [Recovered/Resolved]
  - Lymphopenia [Unknown]
  - Rash maculo-papular [Unknown]
  - Renal tubular disorder [Recovered/Resolved]
  - Vomiting [Recovered/Resolved]
  - Paraesthesia [Recovered/Resolved]
  - Faeces discoloured [Unknown]

NARRATIVE: CASE EVENT DATE: 2018
